FAERS Safety Report 6244239-1 (Version None)
Quarter: 2009Q2

REPORT INFORMATION
  Report Type: 
  Country: None (occurrence: None)
  Receive Date: 20090623
  Receipt Date: 20090623
  Transmission Date: 20091009
  Serious: Yes (Hospitalization)
  Sender: FDA-Public Use
  Company Number: None

PATIENT
  Age: 61 Year
  Sex: Male

DRUGS (1)
  1. NEOMYCIN [Suspect]
     Dosage: BID  TOP
     Route: 061
     Dates: start: 20090415, end: 20090429

REACTIONS (2)
  - CELLULITIS [None]
  - HERPES SIMPLEX [None]
